FAERS Safety Report 8502662-6 (Version None)
Quarter: 2012Q3

REPORT INFORMATION
  Report Type: 
  Country: None (occurrence: None)
  Receive Date: 20120711
  Receipt Date: 20120702
  Transmission Date: 20120928
  Serious: Yes (Other)
  Sender: FDA-Public Use
  Company Number: US-ASTRAZENECA-2012SE32329

PATIENT
  Age: 39 Year
  Sex: Female

DRUGS (6)
  1. SYMBICORT [Suspect]
     Dosage: UNKNOWN DOSE EVERY OTHER DAY
     Route: 055
  2. SYMBICORT [Suspect]
     Indication: CHRONIC OBSTRUCTIVE PULMONARY DISEASE
     Dosage: UNKNOWN DOSE TWO TIMES A DAY
     Route: 055
  3. ADVAIR DISKUS 100/50 [Concomitant]
  4. SYMBICORT [Suspect]
     Indication: ASTHMA
     Dosage: UNKNOWN DOSE TWO TIMES A DAY
     Route: 055
  5. SYMBICORT [Suspect]
     Dosage: UNKNOWN DOSE EVERY OTHER DAY
     Route: 055
  6. NEXIUM [Suspect]
     Route: 048

REACTIONS (15)
  - SYNCOPE [None]
  - HYPERTENSION [None]
  - FATIGUE [None]
  - BRONCHIAL SECRETION RETENTION [None]
  - ADVERSE EVENT [None]
  - CARDIAC DISORDER [None]
  - INTENTIONAL DRUG MISUSE [None]
  - BRAIN INJURY [None]
  - MOBILITY DECREASED [None]
  - COUGH [None]
  - SKIN ODOUR ABNORMAL [None]
  - RESPIRATORY TRACT INFECTION [None]
  - ASTHENIA [None]
  - FEELING ABNORMAL [None]
  - BACTERIAL INFECTION [None]
